FAERS Safety Report 5130341-4 (Version None)
Quarter: 2006Q4

REPORT INFORMATION
  Report Type: 
  Country: None (occurrence: None)
  Receive Date: 20061019
  Receipt Date: 20061006
  Transmission Date: 20070319
  Serious: Yes (Hospitalization, Other)
  Sender: FDA-Public Use
  Company Number: PHFR2006GB03019

PATIENT
  Age: 66 Year
  Sex: Male

DRUGS (1)
  1. DICLOFENAC SODIUM [Suspect]
     Route: 065

REACTIONS (11)
  - ANOREXIA [None]
  - ECTHYMA [None]
  - ERYTHEMA [None]
  - ESCHAR [None]
  - LETHARGY [None]
  - LOCALISED OEDEMA [None]
  - MALAISE [None]
  - NECROSIS [None]
  - NEUTROPENIA [None]
  - PSEUDOMONAS INFECTION [None]
  - SKIN LESION [None]
